FAERS Safety Report 4750081-0 (Version None)
Quarter: 2005Q3

REPORT INFORMATION
  Report Type: 
  Country: None (occurrence: None)
  Receive Date: 20050822
  Receipt Date: 20050809
  Transmission Date: 20060218
  Serious: Yes (Death)
  Sender: FDA-Public Use
  Company Number: 2005FR-00224

PATIENT
  Age: 75 Year
  Sex: Female

DRUGS (7)
  1. ASPIRIN [Suspect]
  2. LISINOPRIL [Suspect]
  3. ZOTAN [Concomitant]
  4. ATENOLOL [Concomitant]
  5. GLYCERYL TRINITRATE [Concomitant]
  6. FUROSEMIDE [Concomitant]
  7. ATORVASTATIN [Concomitant]

REACTIONS (12)
  - ACUTE MYOCARDIAL INFARCTION [None]
  - AIRWAY COMPLICATION OF ANAESTHESIA [None]
  - ANAESTHETIC COMPLICATION PULMONARY [None]
  - COLON CANCER [None]
  - LARYNGEAL OEDEMA [None]
  - LARYNGOSPASM [None]
  - LOWER GASTROINTESTINAL HAEMORRHAGE [None]
  - LOWER RESPIRATORY TRACT INFECTION [None]
  - OBSTRUCTIVE AIRWAYS DISORDER [None]
  - OVERDOSE [None]
  - PULMONARY OEDEMA [None]
  - STRIDOR [None]
